FAERS Safety Report 26106149 (Version 2)
Quarter: 2025Q4

REPORT INFORMATION
  Report Type: Spontaneous
  Country: EU (occurrence: EU)
  Receive Date: 20251201
  Receipt Date: 20251218
  Transmission Date: 20260118
  Serious: Yes (Other)
  Sender: AUROBINDO
  Company Number: EU-002147023-NVSC2025DE168091

PATIENT
  Sex: Female

DRUGS (3)
  1. LETROZOLE [Suspect]
     Active Substance: LETROZOLE
     Indication: Hormone receptor positive HER2 negative breast cancer
     Dosage: 2.5 MILLIGRAM, ONCE A DAY
     Route: 061
     Dates: start: 20250915
  2. KISQALI [Suspect]
     Active Substance: RIBOCICLIB SUCCINATE
     Indication: Hormone receptor positive HER2 negative breast cancer
     Dosage: 400 MG (21 DAYS DAILY INTAKE, 7 DAYS PAUSE)
     Route: 061
     Dates: start: 20250915, end: 20251027
  3. GONADORELIN DIACETATE TETRAHYDRATE [Concomitant]
     Active Substance: GONADORELIN DIACETATE TETRAHYDRATE
     Indication: Hormone receptor positive HER2 negative breast cancer
     Dosage: 3.75 MG MONTHLY
     Route: 065

REACTIONS (4)
  - Transaminases increased [Not Recovered/Not Resolved]
  - Alanine aminotransferase [Not Recovered/Not Resolved]
  - Liver injury [Unknown]
  - Alanine aminotransferase increased [Not Recovered/Not Resolved]

NARRATIVE: CASE EVENT DATE: 20251027
